FAERS Safety Report 4305416-X (Version None)
Quarter: 2004Q1

REPORT INFORMATION
  Report Type: 
  Country: None (occurrence: None)
  Receive Date: 20040226
  Receipt Date: 20031103
  Transmission Date: 20041129
  Serious: No
  Sender: FDA-Public Use
  Company Number: US-BRISTOL-MYERS SQUIBB COMPANY-12425914

PATIENT
  Age: 59 Year
  Sex: Female
  Weight: 70 kg

DRUGS (4)
  1. CARBOPLATIN [Suspect]
     Indication: LUNG NEOPLASM MALIGNANT
     Route: 042
     Dates: start: 20020801, end: 20030201
  2. TAXOL [Suspect]
     Indication: LUNG NEOPLASM MALIGNANT
     Route: 042
     Dates: start: 20020801, end: 20030201
  3. TENORMIN [Concomitant]
  4. PAXIL [Concomitant]

REACTIONS (6)
  - ALOPECIA [None]
  - FLUSHING [None]
  - HYPERVENTILATION [None]
  - PHLEBITIS [None]
  - PRURITUS [None]
  - RASH [None]
